FAERS Safety Report 9505898 (Version 1)
Quarter: 2013Q1

REPORT INFORMATION
  Report Type: Spontaneous
  Country: US (occurrence: None)
  Receive Date: 20130219
  Receipt Date: 20130219
  Transmission Date: 20140127
  Serious: Yes (Death)
  Sender: FDA-Public Use
  Company Number: 075976

PATIENT
  Age: 55 Year
  Sex: Male

DRUGS (2)
  1. LACOSAMIDE [Suspect]
     Indication: CONVULSION
  2. KEPPRA [Suspect]

REACTIONS (1)
  - Death [None]
